FAERS Safety Report 4303298-3 (Version None)
Quarter: 2004Q1

REPORT INFORMATION
  Report Type: 
  Country: None (occurrence: None)
  Receive Date: 20040223
  Receipt Date: 20040212
  Transmission Date: 20041129
  Serious: Yes (Hospitalization)
  Sender: FDA-Public Use
  Company Number: 2003176565TW

PATIENT
  Age: 18 Year
  Sex: Male

DRUGS (1)
  1. CAMPTOSAR [Suspect]
     Indication: NEOPLASM
     Dosage: 26 MG, CYCLIC, IV
     Route: 042
     Dates: start: 20030724, end: 20030802

REACTIONS (4)
  - DEPRESSED LEVEL OF CONSCIOUSNESS [None]
  - HYPOTENSION [None]
  - PYREXIA [None]
  - VOMITING [None]
